FAERS Safety Report 7601511-8 (Version None)
Quarter: 2011Q3

REPORT INFORMATION
  Report Type: 
  Country: None (occurrence: None)
  Receive Date: 20110711
  Receipt Date: 20110705
  Transmission Date: 20111222
  Serious: Yes (Hospitalization)
  Sender: FDA-Public Use
  Company Number: US-ALLERGAN-1109088US

PATIENT
  Age: 39 Year
  Sex: Female

DRUGS (3)
  1. MEDICATION UNSPECIFIED [Concomitant]
     Indication: HYPOTHYROIDISM
  2. BIRTH CONTROL PILL [Concomitant]
     Indication: CONTRACEPTION
  3. BOTOX COSMETIC [Suspect]
     Indication: SKIN WRINKLING
     Dosage: 36 UNITS, SINGLE
     Route: 030
     Dates: start: 20110501, end: 20110501

REACTIONS (11)
  - DIARRHOEA [None]
  - HEADACHE [None]
  - HEART RATE IRREGULAR [None]
  - PALPITATIONS [None]
  - INSOMNIA [None]
  - ANXIETY [None]
  - NAUSEA [None]
  - VISION BLURRED [None]
  - PYREXIA [None]
  - SPEECH DISORDER [None]
  - VOMITING [None]
